FAERS Safety Report 15908000 (Version 3)
Quarter: 2022Q4

REPORT INFORMATION
  Report Type: Spontaneous
  Country: US (occurrence: None)
  Receive Date: 20190204
  Receipt Date: 20221223
  Transmission Date: 20230113
  Serious: Yes (Hospitalization, Other)
  Sender: FDA-Public Use
  Company Number: 2018SF14979

PATIENT
  Age: 25447 Day
  Sex: Female
  Weight: 59 kg

DRUGS (63)
  1. NEXIUM [Suspect]
     Active Substance: ESOMEPRAZOLE MAGNESIUM
     Indication: Gastrooesophageal reflux disease
     Route: 048
     Dates: start: 2013
  2. NEXIUM [Suspect]
     Active Substance: ESOMEPRAZOLE MAGNESIUM
     Indication: Gastrooesophageal reflux disease
     Route: 048
     Dates: start: 2008, end: 2016
  3. NEXIUM [Suspect]
     Active Substance: ESOMEPRAZOLE MAGNESIUM
     Indication: Gastrooesophageal reflux disease
     Route: 048
     Dates: start: 2008, end: 2016
  4. DEXILANT [Suspect]
     Active Substance: DEXLANSOPRAZOLE
     Indication: Gastrooesophageal reflux disease
     Route: 065
     Dates: start: 2016
  5. DEXILANT [Suspect]
     Active Substance: DEXLANSOPRAZOLE
     Indication: Gastrooesophageal reflux disease
     Route: 065
     Dates: start: 2008, end: 2016
  6. DEXILANT [Suspect]
     Active Substance: DEXLANSOPRAZOLE
     Indication: Gastrooesophageal reflux disease
     Route: 065
     Dates: start: 20160524
  7. ROPINIROLE [Concomitant]
     Active Substance: ROPINIROLE
     Dates: start: 20160131
  8. ACETAMINOPHEN\HYDROCODONE BITARTRATE [Concomitant]
     Active Substance: ACETAMINOPHEN\HYDROCODONE BITARTRATE
     Dosage: 5-325
     Dates: start: 20160206
  9. ADVAIR HFA [Concomitant]
     Active Substance: FLUTICASONE PROPIONATE\SALMETEROL XINAFOATE
     Dosage: HFA 115-21 MCG INH
     Dates: start: 20160329
  10. GABAPENTIN [Concomitant]
     Active Substance: GABAPENTIN
     Dates: start: 20160329
  11. NUCYNTA [Concomitant]
     Active Substance: TAPENTADOL HYDROCHLORIDE
     Dates: start: 20160428
  12. MECLIZINE [Concomitant]
     Active Substance: MECLIZINE HYDROCHLORIDE
     Dates: start: 20160516
  13. AMITIZA [Concomitant]
     Active Substance: LUBIPROSTONE
     Dates: start: 20160524
  14. ONDANSETRON [Concomitant]
     Active Substance: ONDANSETRON
     Dates: start: 20160524
  15. METOLAZONE [Concomitant]
     Active Substance: METOLAZONE
     Dates: start: 20160625
  16. CEFDINIR [Concomitant]
     Active Substance: CEFDINIR
     Dates: start: 20160606
  17. LASIX [Concomitant]
     Active Substance: FUROSEMIDE
     Dosage: 40MG LASIX PO QAM AND 20MG AT NIGHT
  18. AZITHROMYCIN [Concomitant]
     Active Substance: AZITHROMYCIN
     Dates: start: 20130101
  19. LEVALBUTEROL HYDROCHLORIDE [Concomitant]
     Active Substance: LEVALBUTEROL HYDROCHLORIDE
     Dates: start: 20130104
  20. METHYLPREDNISOLONE [Concomitant]
     Active Substance: METHYLPREDNISOLONE
     Dates: start: 20130104
  21. FLUCONAZOLE [Concomitant]
     Active Substance: FLUCONAZOLE
     Dates: start: 20130108
  22. MELOXICAM [Concomitant]
     Active Substance: MELOXICAM
     Dates: start: 20130117
  23. MONTELUKAST SODIUM [Concomitant]
     Active Substance: MONTELUKAST SODIUM
     Dates: start: 20130622
  24. PREMARIN [Concomitant]
     Active Substance: ESTROGENS, CONJUGATED
     Dates: start: 20130306
  25. RIZATRIPTAN [Concomitant]
     Active Substance: RIZATRIPTAN
     Dates: start: 20130717
  26. TUMS [Concomitant]
     Active Substance: CALCIUM CARBONATE
     Dates: start: 20130306
  27. ACYCLOVIR [Concomitant]
     Active Substance: ACYCLOVIR
     Indication: Antiviral treatment
  28. AVALIDE [Concomitant]
     Active Substance: HYDROCHLOROTHIAZIDE\IRBESARTAN
  29. BACLOFEN [Concomitant]
     Active Substance: BACLOFEN
  30. CARDIZEM [Concomitant]
     Active Substance: DILTIAZEM HYDROCHLORIDE
  31. CARVEDILOL [Concomitant]
     Active Substance: CARVEDILOL
  32. CEPHALEXIN [Concomitant]
     Active Substance: CEPHALEXIN
  33. CIPROFLOXACIN [Concomitant]
     Active Substance: CIPROFLOXACIN
  34. CITALOPRAM [Concomitant]
     Active Substance: CITALOPRAM HYDROBROMIDE
  35. DIAZEPAM [Concomitant]
     Active Substance: DIAZEPAM
  36. DIGOXIN [Concomitant]
     Active Substance: DIGOXIN
  37. DOXYCYCLINE HYCLATE [Concomitant]
     Active Substance: DOXYCYCLINE HYCLATE
  38. FLECTOR [Concomitant]
     Active Substance: DICLOFENAC EPOLAMINE
  39. LEVALBUTEROL [Concomitant]
     Active Substance: LEVALBUTEROL
  40. LIDOCAINE [Concomitant]
     Active Substance: LIDOCAINE
  41. LINZESS [Concomitant]
     Active Substance: LINACLOTIDE
  42. METRONIDAZOLE [Concomitant]
     Active Substance: METRONIDAZOLE
  43. NAPROXEN [Concomitant]
     Active Substance: NAPROXEN
  44. OXYCODONE [Concomitant]
     Active Substance: OXYCODONE
  45. PRAMIPEXOLE [Concomitant]
     Active Substance: PRAMIPEXOLE
  46. PREDNISOLONE [Concomitant]
     Active Substance: PREDNISOLONE
  47. PROMETHAZINE [Concomitant]
     Active Substance: PROMETHAZINE HYDROCHLORIDE
  48. SYMBICORT [Concomitant]
     Active Substance: BUDESONIDE\FORMOTEROL FUMARATE DIHYDRATE
  49. TIZANIDINE [Concomitant]
     Active Substance: TIZANIDINE
  50. XARELTO [Concomitant]
     Active Substance: RIVAROXABAN
  51. TRAMADOL HYDROCHLORIDE [Concomitant]
     Active Substance: TRAMADOL HYDROCHLORIDE
  52. KIRKLAND SIGNATURE ALLERCLEAR [Concomitant]
     Active Substance: LORATADINE
  53. ONDANSETRON HCL [Concomitant]
     Active Substance: ONDANSETRON HYDROCHLORIDE
  54. CALCIUM  CHEWS [Concomitant]
  55. LANXION [Concomitant]
  56. POTASSIUM [Concomitant]
     Active Substance: POTASSIUM
  57. PROVENTIL HFA [Concomitant]
     Active Substance: ALBUTEROL SULFATE
  58. SINGULAIR [Concomitant]
     Active Substance: MONTELUKAST SODIUM
  59. SKELAXIN [Concomitant]
     Active Substance: METAXALONE
  60. TYLENOL [Concomitant]
     Active Substance: ACETAMINOPHEN
  61. VITAMIN E [Concomitant]
     Active Substance: .ALPHA.-TOCOPHEROL
  62. ZOFRAN [Concomitant]
     Active Substance: ONDANSETRON HYDROCHLORIDE
  63. VITAMIN D3 [Concomitant]
     Active Substance: CHOLECALCIFEROL

REACTIONS (5)
  - Chronic kidney disease [Not Recovered/Not Resolved]
  - Acute kidney injury [Unknown]
  - Vitamin D deficiency [Unknown]
  - Hyperparathyroidism secondary [Unknown]
  - Nephrogenic anaemia [Unknown]

NARRATIVE: CASE EVENT DATE: 20160623
